FAERS Safety Report 22661545 (Version 1)
Quarter: 2023Q2

REPORT INFORMATION
  Report Type: Spontaneous
  Country: US (occurrence: US)
  Receive Date: 20230630
  Receipt Date: 20230630
  Transmission Date: 20230722
  Serious: Yes (Death)
  Sender: FDA-Public Use
  Company Number: US-AMGEN-USASP2023112368

PATIENT
  Sex: Female

DRUGS (8)
  1. BEVACIZUMAB [Suspect]
     Active Substance: BEVACIZUMAB
     Indication: Ovarian cancer stage III
     Dosage: UNK
     Route: 065
  2. BEVACIZUMAB [Suspect]
     Active Substance: BEVACIZUMAB
     Indication: Ovarian cancer stage IV
  3. OLAPARIB [Concomitant]
     Active Substance: OLAPARIB
     Indication: Ovarian cancer stage IV
     Dosage: UNK
  4. OLAPARIB [Concomitant]
     Active Substance: OLAPARIB
     Indication: Ovarian cancer stage III
  5. RUCAPARIB [Concomitant]
     Active Substance: RUCAPARIB
     Indication: Ovarian cancer stage IV
     Dosage: UNK
  6. RUCAPARIB [Concomitant]
     Active Substance: RUCAPARIB
     Indication: Ovarian cancer stage III
  7. NIRAPARIB [Concomitant]
     Active Substance: NIRAPARIB
     Indication: Ovarian cancer stage IV
     Dosage: UNK
  8. NIRAPARIB [Concomitant]
     Active Substance: NIRAPARIB
     Indication: Ovarian cancer stage III

REACTIONS (1)
  - Death [Fatal]
